FAERS Safety Report 6182314-0 (Version None)
Quarter: 2009Q2

REPORT INFORMATION
  Report Type: 
  Country: None (occurrence: None)
  Receive Date: 20090505
  Receipt Date: 20090505
  Transmission Date: 20091009
  Serious: Yes (Other)
  Sender: FDA-Public Use
  Company Number: None

PATIENT
  Sex: Female
  Weight: 72.5755 kg

DRUGS (1)
  1. LYRICA [Suspect]

REACTIONS (16)
  - AGITATION [None]
  - AMNESIA [None]
  - ANGER [None]
  - CONDITION AGGRAVATED [None]
  - CYSTITIS [None]
  - DRY EYE [None]
  - FATIGUE [None]
  - IRRITABILITY [None]
  - NERVOUSNESS [None]
  - OEDEMA PERIPHERAL [None]
  - PAIN [None]
  - PSYCHOMOTOR HYPERACTIVITY [None]
  - SUPRAVENTRICULAR TACHYCARDIA [None]
  - THINKING ABNORMAL [None]
  - URINARY INCONTINENCE [None]
  - WEIGHT INCREASED [None]
